FAERS Safety Report 20321328 (Version 1)
Quarter: 2022Q1

REPORT INFORMATION
  Report Type: Report from Study
  Country: EC (occurrence: EC)
  Receive Date: 20220111
  Receipt Date: 20220111
  Transmission Date: 20220424
  Serious: Yes (Other)
  Sender: FDA-Public Use
  Company Number: EC-NOVARTISPH-NVSC2022EC003547

PATIENT
  Age: 39 Year
  Sex: Female

DRUGS (1)
  1. TASIGNA [Suspect]
     Active Substance: NILOTINIB
     Indication: Chronic myeloid leukaemia
     Dosage: 400 MG, BID
     Route: 048
     Dates: start: 20190603, end: 20210520

REACTIONS (1)
  - White blood cell count increased [Unknown]

NARRATIVE: CASE EVENT DATE: 20211210
